FAERS Safety Report 14656338 (Version 2)
Quarter: 2018Q1

REPORT INFORMATION
  Report Type: Spontaneous
  Country: US (occurrence: US)
  Receive Date: 20180319
  Receipt Date: 20180330
  Transmission Date: 20180509
  Serious: Yes (Other)
  Sender: FDA-Public Use
  Company Number: US-TEVA-2018-US-870473

PATIENT
  Age: 76 Year
  Sex: Female

DRUGS (1)
  1. CLINDAMYCIN. [Suspect]
     Active Substance: CLINDAMYCIN
     Indication: SKIN DISORDER
     Dates: start: 20180307

REACTIONS (8)
  - Erythema [Unknown]
  - Vomiting [Unknown]
  - Dyspepsia [Recovering/Resolving]
  - Nausea [Unknown]
  - Product size issue [Unknown]
  - Malaise [Unknown]
  - Chest pain [Unknown]
  - Oesophageal discomfort [Unknown]

NARRATIVE: CASE EVENT DATE: 20180307
